FAERS Safety Report 25657355 (Version 1)
Quarter: 2025Q3

REPORT INFORMATION
  Report Type: Spontaneous
  Country: US (occurrence: US)
  Receive Date: 20250808
  Receipt Date: 20250808
  Transmission Date: 20251020
  Serious: No
  Sender: MERCK SHARP & DOHME LLC
  Company Number: US-009507513-2315198

PATIENT
  Age: 39 Year
  Sex: Female

DRUGS (2)
  1. DAPTOMYCIN [Suspect]
     Active Substance: DAPTOMYCIN
     Indication: Pneumonia
  2. MEROPENEM [Concomitant]
     Active Substance: MEROPENEM
     Indication: Pneumonia

REACTIONS (1)
  - Product use in unapproved indication [Unknown]
